FAERS Safety Report 16694991 (Version 1)
Quarter: 2019Q3

REPORT INFORMATION
  Report Type: Spontaneous
  Country: US (occurrence: US)
  Receive Date: 20190812
  Receipt Date: 20190812
  Transmission Date: 20191004
  Serious: Yes (Other)
  Sender: FDA-Public Use
  Company Number: US-BAUSCH-BL-2019-022849

PATIENT
  Age: 83 Year
  Sex: Female
  Weight: 54 kg

DRUGS (4)
  1. INVELTYS [Suspect]
     Active Substance: LOTEPREDNOL ETABONATE
     Indication: CATARACT OPERATION
     Route: 047
     Dates: start: 20190510, end: 20190516
  2. INVELTYS [Suspect]
     Active Substance: LOTEPREDNOL ETABONATE
     Route: 047
     Dates: start: 20190517, end: 20190521
  3. BROMSITE [Suspect]
     Active Substance: BROMFENAC SODIUM
     Indication: POSTOPERATIVE CARE
     Route: 047
     Dates: end: 20190521
  4. BESIVANCE [Suspect]
     Active Substance: BESIFLOXACIN
     Indication: PRODUCT USED FOR UNKNOWN INDICATION
     Route: 047
     Dates: end: 20190521

REACTIONS (4)
  - Eye pain [Recovered/Resolved]
  - Eye irritation [Recovered/Resolved]
  - Punctate keratitis [Recovering/Resolving]
  - Ocular toxicity [Unknown]

NARRATIVE: CASE EVENT DATE: 201905
